FAERS Safety Report 23189725 (Version 6)
Quarter: 2024Q3

REPORT INFORMATION
  Report Type: Report from Study
  Country: CA (occurrence: CA)
  Receive Date: 20231116
  Receipt Date: 20240731
  Transmission Date: 20241017
  Serious: Yes (Hospitalization)
  Sender: ROCHE
  Company Number: CA-ROCHE-3458416

PATIENT
  Sex: Male

DRUGS (1)
  1. ROZLYTREK [Suspect]
     Active Substance: ENTRECTINIB
     Indication: Product used for unknown indication
     Dosage: MORE DOSAGE INFORMATION IS 200 MG DAILY
     Route: 048
     Dates: start: 20231012, end: 202406

REACTIONS (3)
  - Hepatic enzyme increased [Unknown]
  - Product dose omission issue [Unknown]
  - Off label use [Unknown]
